FAERS Safety Report 7722716-1 (Version None)
Quarter: 2011Q3

REPORT INFORMATION
  Report Type: 
  Country: None (occurrence: None)
  Receive Date: 20110831
  Receipt Date: 20110822
  Transmission Date: 20111222
  Serious: Yes (Other)
  Sender: FDA-Public Use
  Company Number: AU-ASTRAZENECA-2011SE50034

PATIENT
  Age: 71 Year
  Sex: Male

DRUGS (1)
  1. CRESTOR [Suspect]
     Route: 048
     Dates: end: 20110820

REACTIONS (4)
  - OVERWEIGHT [None]
  - MYALGIA [None]
  - SINGLE FUNCTIONAL KIDNEY [None]
  - AMNESIA [None]
